FAERS Safety Report 17465703 (Version 5)
Quarter: 2020Q3

REPORT INFORMATION
  Report Type: Report from Study
  Country: US (occurrence: US)
  Receive Date: 20200227
  Receipt Date: 20200820
  Transmission Date: 20201102
  Serious: No
  Sender: FDA-Public Use
  Company Number: NVSC2020US053663

PATIENT
  Sex: Male

DRUGS (2)
  1. COSENTYX [Suspect]
     Active Substance: SECUKINUMAB
     Indication: PSORIASIS
     Dosage: 300 MG, QMO
     Route: 058
     Dates: start: 20191114
  2. COSENTYX [Suspect]
     Active Substance: SECUKINUMAB
     Dosage: 300 MG, Q4W
     Route: 058

REACTIONS (8)
  - Drug ineffective [Unknown]
  - Skin exfoliation [Unknown]
  - Fatigue [Unknown]
  - Injection site pain [Unknown]
  - Skin irritation [Unknown]
  - Somnolence [Unknown]
  - Hypersensitivity [Unknown]
  - Erythema [Unknown]
